FAERS Safety Report 5500536-6 (Version None)
Quarter: 2007Q4

REPORT INFORMATION
  Report Type: 
  Country: None (occurrence: None)
  Receive Date: 20071018
  Receipt Date: 20061024
  Transmission Date: 20080405
  Serious: Yes (Other)
  Sender: FDA-Public Use
  Company Number: 2006130795

PATIENT
  Sex: Female
  Weight: 83.9154 kg

DRUGS (4)
  1. NEURONTIN [Suspect]
     Indication: NEURALGIA
     Dosage: (DAILY: EVERY DAY)
     Dates: start: 20050101
  2. LYRICA [Suspect]
     Dosage: (75 MG)
     Dates: start: 20060101, end: 20060101
  3. ACCUPRIL [Concomitant]
  4. LASIX [Concomitant]

REACTIONS (1)
  - STEVENS-JOHNSON SYNDROME [None]
